FAERS Safety Report 9319028 (Version 3)
Quarter: 2013Q3

REPORT INFORMATION
  Report Type: Spontaneous
  Country: US (occurrence: None)
  Receive Date: 20130524
  Receipt Date: 20130916
  Transmission Date: 20140515
  Serious: Yes (Hospitalization, Other)
  Sender: FDA-Public Use
  Company Number: JPI-P-031834

PATIENT
  Age: 49 Year
  Sex: Female
  Weight: 113.4 kg

DRUGS (3)
  1. XYREM (500 MILLIGRAM/MILLILITERS, SOLUTION) (SODIUM OXYBATE) [Suspect]
     Indication: NARCOLEPSY
     Route: 048
     Dates: start: 201109
  2. XYREM (500 MILLIGRAM/MILLILITERS, SOLUTION) (SODIUM OXYBATE) [Suspect]
     Indication: SOMNOLENCE
     Route: 048
     Dates: start: 201109
  3. DULOXETINE HYDROCHLORIDE [Concomitant]

REACTIONS (6)
  - Fall [None]
  - Ankle fracture [None]
  - Ankle operation [None]
  - Ligament sprain [None]
  - Head injury [None]
  - Limb injury [None]
